FAERS Safety Report 8814505 (Version 2)
Quarter: 2012Q4

REPORT INFORMATION
  Report Type: Spontaneous
  Country: US (occurrence: None)
  Receive Date: 20120926
  Receipt Date: 20121214
  Transmission Date: 20130627
  Serious: Yes (Death, Other)
  Sender: FDA-Public Use
  Company Number: TPA2012A06700

PATIENT
  Age: 70 Year
  Sex: Male

DRUGS (3)
  1. ACTOS (PIOGLITAZONE HYDROCHLORIDE) [Suspect]
     Indication: TYPE 2 DIABETES MELLITUS
     Dates: start: 20080828, end: 20111118
  2. METFORMIN (METFORMIN) [Concomitant]
  3. AMARYL (GLIMEPIRIDE) [Concomitant]

REACTIONS (1)
  - Bladder cancer [None]
